FAERS Safety Report 21608883 (Version 1)
Quarter: 2022Q4

REPORT INFORMATION
  Report Type: Report from Study
  Country: CA (occurrence: CA)
  Receive Date: 20221117
  Receipt Date: 20221117
  Transmission Date: 20230113
  Serious: Yes (Hospitalization, Other)
  Sender: FDA-Public Use
  Company Number: CA-BEH-2022152008

PATIENT
  Age: 4 Year
  Sex: Male
  Weight: 12.7 kg

DRUGS (13)
  1. HIZENTRA [Suspect]
     Active Substance: HUMAN IMMUNOGLOBULIN G
     Indication: Infection
     Dosage: 2 GRAM, QW
     Route: 065
     Dates: start: 20211104
  2. HIZENTRA [Suspect]
     Active Substance: HUMAN IMMUNOGLOBULIN G
     Dosage: GIVEN Q3 WEEKS FOR AN UNSPECIFIED AMOUNT OF TIME
     Route: 065
  3. HIZENTRA [Suspect]
     Active Substance: HUMAN IMMUNOGLOBULIN G
     Dosage: UNK
     Route: 065
     Dates: start: 202210
  4. CLONIDINE [Concomitant]
     Active Substance: CLONIDINE
  5. ARANESP [Concomitant]
     Active Substance: DARBEPOETIN ALFA
  6. SODIUM PHOSPHATE [Concomitant]
     Active Substance: SODIUM PHOSPHATE
  7. LEVOCARNITINE [Concomitant]
     Active Substance: LEVOCARNITINE
  8. LANSOPRAZOLE [Concomitant]
     Active Substance: LANSOPRAZOLE
  9. AMLODIPINE [Concomitant]
     Active Substance: AMLODIPINE BESYLATE
  10. SODIUM BICARBONATE [Concomitant]
     Active Substance: SODIUM BICARBONATE
  11. CYPROHEPTADINE [Concomitant]
     Active Substance: CYPROHEPTADINE
  12. CENTRUM JUNIOR [ASCORBIC ACID;BIOTIN;CALCIUM;CALCIUM CARBONATE;CALCIUM [Concomitant]
  13. MELATONIN [Concomitant]
     Active Substance: MELATONIN

REACTIONS (6)
  - Bacterial infection [Unknown]
  - No adverse event [Unknown]
  - Inappropriate schedule of product administration [Unknown]
  - Therapy interrupted [Unknown]
  - Pyrexia [Unknown]
  - Jejunostomy [Unknown]
